FAERS Safety Report 24369887 (Version 2)
Quarter: 2025Q2

REPORT INFORMATION
  Report Type: Report from Study
  Country: US (occurrence: US)
  Receive Date: 20240927
  Receipt Date: 20250627
  Transmission Date: 20250716
  Serious: Yes (Other)
  Sender: ABBVIE
  Company Number: US-ABBVIE-5936051

PATIENT
  Sex: Male

DRUGS (1)
  1. RINVOQ [Suspect]
     Active Substance: UPADACITINIB
     Indication: Psoriatic arthropathy
     Route: 048
     Dates: start: 20230215

REACTIONS (3)
  - Knee arthroplasty [Recovering/Resolving]
  - Post procedural swelling [Not Recovered/Not Resolved]
  - Arthralgia [Recovering/Resolving]
